FAERS Safety Report 5854791-3 (Version None)
Quarter: 2008Q3

REPORT INFORMATION
  Report Type: 
  Country: None (occurrence: None)
  Receive Date: 20080822
  Receipt Date: 20080110
  Transmission Date: 20090109
  Serious: No
  Sender: FDA-Public Use
  Company Number: US-ABBOTT-08P-163-0432912-00

PATIENT
  Sex: Female
  Weight: 72.64 kg

DRUGS (4)
  1. SYNTHROID [Suspect]
     Indication: HYPOTHYROIDISM
     Route: 048
     Dates: start: 20070101
  2. PRINZIDE [Concomitant]
     Indication: HYPERTENSION
     Route: 048
  3. INEGY [Concomitant]
     Indication: BLOOD CHOLESTEROL INCREASED
  4. DETROL LA [Concomitant]
     Indication: HYPERTONIC BLADDER

REACTIONS (2)
  - FEELING COLD [None]
  - PARAESTHESIA [None]
